FAERS Safety Report 9332880 (Version 2)
Quarter: 2013Q2

REPORT INFORMATION
  Report Type: Spontaneous
  Country: FR (occurrence: FR)
  Receive Date: 20130606
  Receipt Date: 20130621
  Transmission Date: 20140414
  Serious: Yes (Hospitalization)
  Sender: FDA-Public Use
  Company Number: FR-MERCK-1305FRA017156

PATIENT
  Age: 80 Year
  Sex: Female

DRUGS (6)
  1. FOSAVANCE [Suspect]
     Indication: OSTEOPOROSIS
     Dosage: 1 DF, QD
     Route: 048
  2. FORTZAAR 100 MG/25 MG, COMPRIM? PELLICUL? [Suspect]
     Indication: HYPERTENSION
     Dosage: 100 MG, QD
     Route: 048
  3. TAXOTERE [Suspect]
     Indication: INVASIVE DUCTAL BREAST CARCINOMA
     Dosage: UNK
     Dates: start: 20110309
  4. TAXOTERE [Suspect]
     Dosage: 75 MG/M2, UNK
  5. LEXOMIL [Concomitant]
  6. INIPOMP [Concomitant]

REACTIONS (3)
  - Anaemia [Recovered/Resolved]
  - Cough [Recovered/Resolved]
  - Gastrooesophageal reflux disease [Recovered/Resolved]
